FAERS Safety Report 4819507-8 (Version None)
Quarter: 2005Q4

REPORT INFORMATION
  Report Type: 
  Country: None (occurrence: None)
  Receive Date: 20051031
  Receipt Date: 20050608
  Transmission Date: 20060501
  Serious: No
  Sender: FDA-Public Use
  Company Number: 2005PV000019

PATIENT
  Age: 44 Year
  Sex: Female
  Weight: 79.8331 kg

DRUGS (23)
  1. SYMLIN [Suspect]
     Indication: DIABETES MELLITUS INSULIN-DEPENDENT
     Dosage: 6.0 UNITS; TID; SC; SEE IMAGE
     Route: 058
     Dates: start: 20050525, end: 20050528
  2. SYMLIN [Suspect]
     Indication: DIABETES MELLITUS INSULIN-DEPENDENT
     Dosage: 6.0 UNITS; TID; SC; SEE IMAGE
     Route: 058
     Dates: start: 20050629, end: 20050601
  3. SYMLIN [Suspect]
     Indication: DIABETES MELLITUS INSULIN-DEPENDENT
     Dosage: 6.0 UNITS; TID; SC; SEE IMAGE
     Route: 058
     Dates: start: 20050602, end: 20050604
  4. SYMLIN [Suspect]
     Indication: DIABETES MELLITUS INSULIN-DEPENDENT
     Dosage: 6.0 UNITS; TID; SC; SEE IMAGE
     Route: 058
     Dates: start: 20050605
  5. LEVOXYL [Concomitant]
  6. LIPITOR [Concomitant]
  7. LISINOPRIL [Concomitant]
  8. NEURONTIN [Concomitant]
  9. NORTRIPTYLINE HCL [Concomitant]
  10. ADVAIR DISKUS 250/50 [Concomitant]
  11. ASPIRIN [Concomitant]
  12. FLUOXETINE [Concomitant]
  13. DETROL [Concomitant]
  14. LORATADINE [Concomitant]
  15. SULINDAC [Concomitant]
  16. VERAPAMIL [Concomitant]
  17. LASIX [Concomitant]
  18. PRENATAL WITH FE [Concomitant]
  19. CALCIUM GLUCONATE [Concomitant]
  20. ALBUTEROL [Concomitant]
  21. ASTELIN [Concomitant]
  22. VITAMIN E [Concomitant]
  23. NOVOLIN [Concomitant]

REACTIONS (2)
  - NAUSEA [None]
  - WEIGHT DECREASED [None]
